FAERS Safety Report 11594159 (Version 1)
Quarter: 2015Q4

REPORT INFORMATION
  Report Type: Spontaneous
  Country: FR (occurrence: FR)
  Receive Date: 20151005
  Receipt Date: 20151005
  Transmission Date: 20160304
  Serious: Yes (Hospitalization)
  Sender: FDA-Public Use
  Company Number: FR-TEVA-596856ISR

PATIENT
  Age: 24 Year
  Sex: Female

DRUGS (2)
  1. LEELOO 0.1 MG/0.02 MG [Suspect]
     Active Substance: ETHINYL ESTRADIOL\LEVONORGESTREL
     Indication: CHRONIC SINUSITIS
     Dosage: 1 DOSAGE FORMS DAILY; ETHINYLESTRADIOL 0.02 MG + LEVONORGESTREL 0.1 MG
     Route: 048
     Dates: start: 2012
  2. RHINOMAXIL 100 MCG/DOSE [Suspect]
     Active Substance: BECLOMETHASONE DIPROPIONATE
     Indication: CHRONIC SINUSITIS
     Dosage: 1 DOSAGE FORMS DAILY; FORM: SUSPENSION FOR NASAL PULVERISATION
     Route: 045
     Dates: start: 20150530, end: 20150902

REACTIONS (2)
  - Papilloedema [Recovering/Resolving]
  - Intracranial pressure increased [Recovering/Resolving]

NARRATIVE: CASE EVENT DATE: 20150902
